FAERS Safety Report 11273074 (Version 1)
Quarter: 2015Q3

REPORT INFORMATION
  Report Type: Spontaneous
  Country: US (occurrence: None)
  Receive Date: 20150714
  Receipt Date: 20150714
  Transmission Date: 20151125
  Serious: No
  Sender: FDA-Public Use
  Company Number: None

PATIENT
  Age: 45 Year
  Sex: Female
  Weight: 54.43 kg

DRUGS (5)
  1. CLARINEX [Concomitant]
     Active Substance: DESLORATADINE
  2. MUTLI-VITAMIN [Concomitant]
  3. IBUPROFEN. [Concomitant]
     Active Substance: IBUPROFEN
  4. RESTASIS [Suspect]
     Active Substance: CYCLOSPORINE
     Indication: DRY EYE
     Dosage: 1 DROP, TWICE DAILY, INTO THE EYE
     Route: 031
     Dates: start: 20140729, end: 20140815
  5. ACETAMINOPHEN. [Concomitant]
     Active Substance: ACETAMINOPHEN

REACTIONS (2)
  - Headache [None]
  - Photophobia [None]

NARRATIVE: CASE EVENT DATE: 20140804
